FAERS Safety Report 21579796 (Version 1)
Quarter: 2022Q4

REPORT INFORMATION
  Report Type: Other
  Country: SD (occurrence: None)
  Receive Date: 20221110
  Receipt Date: 20221110
  Transmission Date: 20230113
  Serious: Yes (Other)
  Sender: FDA-Public Use
  Company Number: SD-USAntibiotics-000088

PATIENT
  Age: 25 Year
  Sex: Male

DRUGS (4)
  1. AMOXICILLIN AND CLAVULANATE POTASSIUM [Suspect]
     Active Substance: AMOXICILLIN\CLAVULANATE POTASSIUM
     Indication: Actinomycosis
  2. COTRIMOXAZOLE [Suspect]
     Active Substance: SULFAMETHOXAZOLE\TRIMETHOPRIM
     Indication: Actinomycosis
     Dosage: 960 MG TWICE DAILY FOR 5 WEEKS
  3. AMIKACIN SULFATE [Concomitant]
     Active Substance: AMIKACIN SULFATE
     Indication: Actinomycosis
     Dosage: 15 MG/KG TWICE DAILY FOR 3 WEEKS
  4. FOLIC ACID [Concomitant]
     Active Substance: FOLIC ACID
     Indication: Actinomycosis
     Dosage: 5 MG ONCE DAILY FOR 5 WEEKS

REACTIONS (3)
  - Botryomycosis [Recovered/Resolved]
  - Therapy non-responder [Recovered/Resolved]
  - Disease progression [Recovered/Resolved]
